FAERS Safety Report 5227579-4 (Version None)
Quarter: 2007Q1

REPORT INFORMATION
  Report Type: 
  Country: None (occurrence: None)
  Receive Date: 20070202
  Receipt Date: 20070125
  Transmission Date: 20070707
  Serious: Yes (Hospitalization)
  Sender: FDA-Public Use
  Company Number: US-JNJFOC-20070106682

PATIENT
  Age: 75 Year
  Sex: Female
  Weight: 61.24 kg

DRUGS (3)
  1. FENTANYL [Suspect]
     Indication: PAIN
     Route: 062
  2. PERCOCET [Concomitant]
     Indication: PAIN
     Route: 065
  3. DILAUDID [Concomitant]
     Indication: PAIN
     Route: 065

REACTIONS (6)
  - ARTHRALGIA [None]
  - FALL [None]
  - HEAD INJURY [None]
  - INAPPROPRIATE SCHEDULE OF DRUG ADMINISTRATION [None]
  - NAUSEA [None]
  - SEDATION [None]
